FAERS Safety Report 6223395-5 (Version None)
Quarter: 2009Q2

REPORT INFORMATION
  Report Type: 
  Country: None (occurrence: None)
  Receive Date: 20090609
  Receipt Date: 20090528
  Transmission Date: 20091009
  Serious: Yes (Life-Threatening, Hospitalization)
  Sender: FDA-Public Use
  Company Number: 1000006115

PATIENT
  Age: 60 Year
  Sex: Female

DRUGS (10)
  1. MILNACIPRAN    (MILNACIPRAN HYDROCHLORIDE) (TABLETS) [Suspect]
     Indication: DEPRESSION
     Dosage: 75 MG (25 MG, 3 IN 1 D), ORAL
     Route: 048
  2. ROSUVASTATIN CALCIUM [Concomitant]
  3. LANSOPRAZOLE [Concomitant]
  4. CANDESARTAN CILEXETIL [Concomitant]
  5. AMLODIPINE BESYLATE [Concomitant]
  6. MAGNESIUM OXIDE [Concomitant]
  7. TAKA-DIASTASE [Concomitant]
  8. SENNOSIDE [Concomitant]
  9. HYDROXYZINE PAMOATE [Concomitant]
  10. MELOXICAM [Concomitant]

REACTIONS (3)
  - PERSONALITY CHANGE [None]
  - SPEECH DISORDER [None]
  - SUICIDE ATTEMPT [None]
